FAERS Safety Report 17038846 (Version 3)
Quarter: 2019Q4

REPORT INFORMATION
  Report Type: Spontaneous
  Country: CZ (occurrence: CZ)
  Receive Date: 20191115
  Receipt Date: 20191210
  Transmission Date: 20200122
  Serious: Yes (Hospitalization, Other)
  Sender: FDA-Public Use
  Company Number: CZ-PFIZER INC-2019492038

PATIENT
  Age: 75 Year
  Sex: Female

DRUGS (1)
  1. AMIODARONE HCL [Suspect]
     Active Substance: AMIODARONE HYDROCHLORIDE
     Indication: ATRIAL FIBRILLATION
     Dosage: UNK

REACTIONS (8)
  - Inflammation [Recovering/Resolving]
  - Dyspnoea [Recovering/Resolving]
  - Pulmonary function test decreased [Recovering/Resolving]
  - Pneumonia [Recovering/Resolving]
  - Pulmonary toxicity [Recovering/Resolving]
  - Asthma [Recovering/Resolving]
  - Obstructive airways disorder [Recovering/Resolving]
  - Corneal deposits [Unknown]
